FAERS Safety Report 24066871 (Version 1)
Quarter: 2024Q3

REPORT INFORMATION
  Report Type: Spontaneous
  Country: TR (occurrence: TR)
  Receive Date: 20240709
  Receipt Date: 20240709
  Transmission Date: 20241016
  Serious: Yes (Death, Other)
  Sender: NOVARTIS
  Company Number: TR-002147023-NVSC2024TR141476

PATIENT
  Sex: Female

DRUGS (1)
  1. EVEROLIMUS [Suspect]
     Active Substance: EVEROLIMUS
     Indication: Rhabdomyoma
     Dosage: 0.4 MG, QD
     Route: 065

REACTIONS (3)
  - Pneumonia [Fatal]
  - Product use in unapproved indication [Unknown]
  - Product use issue [Unknown]
